FAERS Safety Report 7261962-0 (Version None)
Quarter: 2011Q1

REPORT INFORMATION
  Report Type: 
  Country: None (occurrence: None)
  Receive Date: 20110130
  Receipt Date: 20101213
  Transmission Date: 20110831
  Serious: No
  Sender: FDA-Public Use
  Company Number: US-ABBOTT-10P-163-0691183-00

PATIENT
  Age: 24 Year
  Sex: Female

DRUGS (6)
  1. ZOLOFT [Concomitant]
     Indication: DEPRESSION
  2. LOW-OGESTREL [Concomitant]
     Indication: CONTRACEPTION
  3. PREDNISONE [Concomitant]
     Indication: COLITIS ULCERATIVE
  4. ALLEGRA [Concomitant]
     Indication: HYPERSENSITIVITY
  5. LIALDA [Concomitant]
     Indication: COLITIS ULCERATIVE
  6. HUMIRA [Suspect]
     Indication: COLITIS ULCERATIVE
     Dates: start: 20101124

REACTIONS (3)
  - ERYTHEMA [None]
  - PAIN IN EXTREMITY [None]
  - OEDEMA PERIPHERAL [None]
